FAERS Safety Report 8531656-X (Version None)
Quarter: 2012Q3

REPORT INFORMATION
  Report Type: 
  Country: None (occurrence: None)
  Receive Date: 20120723
  Receipt Date: 20120716
  Transmission Date: 20120928
  Serious: Yes (Disabling)
  Sender: FDA-Public Use
  Company Number: FR-UCBSA-059217

PATIENT
  Age: 74 Year
  Sex: Male
  Weight: 78 kg

DRUGS (10)
  1. OMEPRAZOLE [Concomitant]
  2. LASIX [Concomitant]
  3. NEUPRO [Suspect]
     Indication: PARKINSON'S DISEASE
     Route: 062
     Dates: start: 20111216
  4. ZOLADEX [Concomitant]
  5. ARIXTRA [Concomitant]
  6. TILCOTIL [Concomitant]
  7. STALEVO 100 [Concomitant]
  8. CRESTOR [Concomitant]
  9. ANTI-DIABETIC DRUG [Concomitant]
     Indication: DIABETES MELLITUS
  10. ZOLPIDEM [Concomitant]

REACTIONS (1)
  - PARAESTHESIA [None]
